FAERS Safety Report 16134480 (Version 4)
Quarter: 2019Q3

REPORT INFORMATION
  Report Type: Report from Study
  Country: IT (occurrence: IT)
  Receive Date: 20190329
  Receipt Date: 20190719
  Transmission Date: 20191004
  Serious: Yes (Hospitalization, Other)
  Sender: FDA-Public Use
  Company Number: IT-PFIZER INC-2019132740

PATIENT
  Age: 46 Year
  Sex: Female

DRUGS (3)
  1. TRITTICO [Suspect]
     Active Substance: TRAZODONE HYDROCHLORIDE
     Dosage: 17 DF, SINGLE
     Route: 048
     Dates: start: 20190103, end: 20190103
  2. ZOLOFT [Suspect]
     Active Substance: SERTRALINE HYDROCHLORIDE
     Dosage: 5 DF, SINGLE
     Route: 048
     Dates: start: 20190103, end: 20190103
  3. ENTUMIN [Suspect]
     Active Substance: CLOTHIAPINE
     Dosage: 10 ML, SINGLE
     Route: 048
     Dates: start: 20190103, end: 20190103

REACTIONS (5)
  - Sopor [Recovering/Resolving]
  - Drug abuse [Unknown]
  - Coma [Unknown]
  - Intentional overdose [Unknown]
  - Intentional self-injury [Unknown]

NARRATIVE: CASE EVENT DATE: 20190103
